FAERS Safety Report 6979449-9 (Version None)
Quarter: 2010Q3

REPORT INFORMATION
  Report Type: 
  Country: None (occurrence: None)
  Receive Date: 20100908
  Receipt Date: 20100824
  Transmission Date: 20110219
  Serious: Yes (Other)
  Sender: FDA-Public Use
  Company Number: FKO201000359

PATIENT
  Age: 50 Year
  Sex: Male

DRUGS (4)
  1. CISPLATIN [Suspect]
     Indication: SMALL CELL LUNG CANCER STAGE UNSPECIFIED
     Dosage: (60 MG/M2, DAY 1)
  2. ETOPOSIDE [Suspect]
     Indication: SMALL CELL LUNG CANCER STAGE UNSPECIFIED
     Dosage: (DAYS 1-3 EVERY 3 WEEKS) INTRAVENOUS
     Route: 042
  3. DEXAMETHASONE [Concomitant]
  4. CARBOPLATIN [Concomitant]

REACTIONS (2)
  - AORTIC THROMBOSIS [None]
  - HYPERCOAGULATION [None]
